FAERS Safety Report 5994135-X (Version None)
Quarter: 2008Q4

REPORT INFORMATION
  Report Type: 
  Country: None (occurrence: None)
  Receive Date: 20081210
  Receipt Date: 20081201
  Transmission Date: 20090506
  Serious: Yes (Hospitalization)
  Sender: FDA-Public Use
  Company Number: 2008-187127-NL

PATIENT
  Age: 31 Year
  Sex: Female

DRUGS (2)
  1. ETONOGESTREL [Suspect]
     Indication: CONTRACEPTION
     Dosage: DF
     Dates: start: 20070530
  2. INSULIN [Concomitant]

REACTIONS (3)
  - OVARIAN CYST [None]
  - OVARIAN CYST RUPTURED [None]
  - OVARIAN CYST TORSION [None]
